FAERS Safety Report 6965116-4 (Version None)
Quarter: 2010Q3

REPORT INFORMATION
  Report Type: 
  Country: None (occurrence: None)
  Receive Date: 20100903
  Receipt Date: 20100820
  Transmission Date: 20110219
  Serious: Yes (Hospitalization, Other)
  Sender: FDA-Public Use
  Company Number: US-ELI_LILLY_AND_COMPANY-US201008000499

PATIENT
  Sex: Female

DRUGS (9)
  1. HUMULIN 70/30 [Suspect]
     Indication: TYPE 2 DIABETES MELLITUS
     Dosage: 30 U, 2/D
  2. HUMULIN 70/30 [Suspect]
     Dosage: 30 U, 2/D
  3. HUMULIN 70/30 [Suspect]
     Dosage: 30 U, 2/D
  4. HUMULIN 70/30 [Suspect]
     Dosage: 30 U, 2/D
  5. HUMULIN 70/30 [Suspect]
     Dosage: 30 U, 2/D
  6. HUMULIN 70/30 [Suspect]
     Dosage: 30 U, 2/D
  7. HUMULIN 70/30 [Suspect]
     Dosage: 30 U, 2/D
  8. HUMULIN R [Suspect]
     Indication: TYPE 2 DIABETES MELLITUS
  9. HUMULIN R [Suspect]

REACTIONS (12)
  - ARTHROPATHY [None]
  - BLOOD GLUCOSE INCREASED [None]
  - DRUG INEFFECTIVE [None]
  - EXPIRED DRUG ADMINISTERED [None]
  - HOSPITALISATION [None]
  - INFECTION [None]
  - KNEE ARTHROPLASTY [None]
  - MYOCARDIAL INFARCTION [None]
  - PANCREATIC ENZYMES ABNORMAL [None]
  - RENAL FUNCTION TEST ABNORMAL [None]
  - STENT PLACEMENT [None]
  - UPPER RESPIRATORY TRACT INFECTION [None]
